FAERS Safety Report 13163183 (Version 2)
Quarter: 2017Q3

REPORT INFORMATION
  Report Type: Spontaneous
  Country: FR (occurrence: FR)
  Receive Date: 20170130
  Receipt Date: 20170906
  Transmission Date: 20171127
  Serious: Yes (Other)
  Sender: FDA-Public Use
  Company Number: FR-SA-2017SA012748

PATIENT
  Age: 42 Year
  Sex: Female

DRUGS (2)
  1. RIMIFON [Suspect]
     Active Substance: ISONIAZID
     Indication: LATENT TUBERCULOSIS
     Dosage: 150 MG CAPSULE + 50 MG SYRUP
     Route: 048
     Dates: start: 20161022, end: 20161222
  2. RIFADINE [Suspect]
     Active Substance: RIFAMPIN
     Indication: LATENT TUBERCULOSIS
     Route: 048
     Dates: start: 20161022, end: 20161205

REACTIONS (1)
  - Hepatocellular injury [Recovered/Resolved]

NARRATIVE: CASE EVENT DATE: 20161222
